FAERS Safety Report 14346751 (Version 1)
Quarter: 2018Q1

REPORT INFORMATION
  Report Type: Spontaneous
  Country: US (occurrence: US)
  Receive Date: 20180103
  Receipt Date: 20180103
  Transmission Date: 20180509
  Serious: No
  Sender: FDA-Public Use
  Company Number: US-TEVA-2017-US-830083

PATIENT
  Sex: Female

DRUGS (1)
  1. LOSARTAN. [Suspect]
     Active Substance: LOSARTAN
     Indication: HYPERTENSION

REACTIONS (5)
  - Wrong technique in product usage process [Unknown]
  - Dyspnoea [Unknown]
  - Drug ineffective [Unknown]
  - Heart rate increased [Unknown]
  - Alopecia [Unknown]

NARRATIVE: CASE EVENT DATE: 201711
